FAERS Safety Report 6375341-1 (Version None)
Quarter: 2009Q3

REPORT INFORMATION
  Report Type: 
  Country: None (occurrence: None)
  Receive Date: 20090921
  Receipt Date: 20090914
  Transmission Date: 20100115
  Serious: Yes (Other)
  Sender: FDA-Public Use
  Company Number: 060002J09USA

PATIENT
  Age: 33 Year
  Sex: Female

DRUGS (1)
  1. SEROPHENE [Suspect]
     Indication: OVULATION INDUCTION
     Dosage: 1 IN 1 DAYS

REACTIONS (2)
  - ABORTION SPONTANEOUS [None]
  - DRUG EXPOSURE BEFORE PREGNANCY [None]
